FAERS Safety Report 12957772 (Version 1)
Quarter: 2016Q4

REPORT INFORMATION
  Report Type: Spontaneous
  Country: DE (occurrence: DE)
  Receive Date: 20161118
  Receipt Date: 20161118
  Transmission Date: 20170207
  Serious: Yes (Hospitalization, Other)
  Sender: FDA-Public Use
  Company Number: DE-009507513-1611DEU005475

PATIENT
  Age: 36 Year
  Sex: Female
  Weight: 149 kg

DRUGS (5)
  1. EUTHYROX [Concomitant]
     Active Substance: LEVOTHYROXINE SODIUM
     Dosage: UNK
     Dates: start: 201402
  2. TOUJEO [Concomitant]
     Active Substance: INSULIN GLARGINE
     Dosage: 16 IU, UNK
     Dates: start: 20160812, end: 20160908
  3. VELMETIA [Suspect]
     Active Substance: METFORMIN\SITAGLIPTIN
     Indication: DIABETES MELLITUS
     Dosage: 1 50/850 TAB, BID
     Route: 048
     Dates: start: 20160713, end: 20160908
  4. RAMILICH [Concomitant]
     Active Substance: RAMIPRIL
     Dosage: UNK
     Dates: start: 201411, end: 201609
  5. TOUJEO [Concomitant]
     Active Substance: INSULIN GLARGINE
     Indication: DIABETES MELLITUS
     Dosage: 10 IU, UNK
     Dates: start: 20160808, end: 20160812

REACTIONS (7)
  - Tubulointerstitial nephritis [Recovered/Resolved]
  - Gastroenteritis [Recovered/Resolved]
  - Sepsis [Recovered/Resolved]
  - Pickwickian syndrome [Unknown]
  - Sleep apnoea syndrome [Unknown]
  - Acute kidney injury [Recovered/Resolved]
  - Normochromic normocytic anaemia [Recovered/Resolved]

NARRATIVE: CASE EVENT DATE: 2016
